FAERS Safety Report 14680570 (Version 4)
Quarter: 2018Q2

REPORT INFORMATION
  Report Type: Spontaneous
  Country: US (occurrence: US)
  Receive Date: 20180326
  Receipt Date: 20180416
  Transmission Date: 20180711
  Serious: No
  Sender: FDA-Public Use
  Company Number: US-GLAXOSMITHKLINE-US2018GSK048167

PATIENT
  Sex: Female

DRUGS (2)
  1. IMITREX [Suspect]
     Active Substance: SUMATRIPTAN SUCCINATE
     Indication: MIGRAINE
     Dosage: 20 MG, UNK
     Dates: start: 20180327
  2. IMITREX [Suspect]
     Active Substance: SUMATRIPTAN SUCCINATE
     Indication: MIGRAINE
     Dosage: 100 MG, PRN
     Route: 048
     Dates: start: 20150101

REACTIONS (12)
  - Anxiety [Unknown]
  - Malnutrition [Recovering/Resolving]
  - Thyroid disorder [Recovering/Resolving]
  - Fear [Unknown]
  - Nausea [Unknown]
  - Malaise [Unknown]
  - Drug dose omission [Unknown]
  - Headache [Unknown]
  - Pain [Unknown]
  - Tremor [Unknown]
  - Vomiting [Unknown]
  - Nervousness [Unknown]
